FAERS Safety Report 22587251 (Version 4)
Quarter: 2024Q4

REPORT INFORMATION
  Report Type: Spontaneous
  Country: US (occurrence: US)
  Receive Date: 20230612
  Receipt Date: 20241002
  Transmission Date: 20250115
  Serious: No
  Sender: UNITED THERAPEUTICS
  Company Number: US-UNITED THERAPEUTICS-UNT-2023-016030

PATIENT
  Sex: Female
  Weight: 49.887 kg

DRUGS (6)
  1. REMODULIN [Suspect]
     Active Substance: TREPROSTINIL
     Indication: Pulmonary arterial hypertension
     Dosage: 0.030 ?G/KG, CONTINUING (PHARMACY-FILLED WITH 1.8 ML PER CASSETTE AT A RATE OF 18 MCL PER HOUR)
  2. REMODULIN [Suspect]
     Active Substance: TREPROSTINIL
     Dosage: 0.028 ?G/KG, CONTINUING (PHARMACY-FILLED WITH 1.8 ML PER CASSETTE AT A RATE OF 18 MCL PER HOUR)
  3. REMODULIN [Suspect]
     Active Substance: TREPROSTINIL
     Dosage: 0.028 ?G/KG, CONTINUING (PHARMACY-FILLED WITH 1.8 ML PER CASSETTE AT A RATE OF 17 MCL PER HOUR)
  4. REMODULIN [Suspect]
     Active Substance: TREPROSTINIL
     Dosage: UNK, CONTINUING
  5. OPSUMIT [Concomitant]
     Active Substance: MACITENTAN
     Indication: Product used for unknown indication
  6. REVATIO [Concomitant]
     Active Substance: SILDENAFIL CITRATE
     Indication: Product used for unknown indication

REACTIONS (11)
  - Catheter site pain [Unknown]
  - Seasonal allergy [Not Recovered/Not Resolved]
  - Device failure [Unknown]
  - Device wireless communication issue [Unknown]
  - Device failure [Unknown]
  - Device failure [Unknown]
  - Device malfunction [Unknown]
  - Device wireless communication issue [Unknown]
  - Device wireless communication issue [Unknown]
  - Device physical property issue [Unknown]
  - Device leakage [Unknown]

NARRATIVE: CASE EVENT DATE: 20230101
